FAERS Safety Report 4531764-4 (Version None)
Quarter: 2004Q4

REPORT INFORMATION
  Report Type: 
  Country: None (occurrence: None)
  Receive Date: 20041216
  Receipt Date: 20041201
  Transmission Date: 20050328
  Serious: Yes (Hospitalization)
  Sender: FDA-Public Use
  Company Number: 2004SP000302

PATIENT
  Age: 74 Year
  Sex: Male
  Weight: 74.8435 kg

DRUGS (6)
  1. XOPENEX [Suspect]
     Indication: ASTHMA
     Dosage: 0.63 MG/3 ML; INHALATION
     Route: 055
     Dates: start: 20040601
  2. PREDNISONE [Concomitant]
  3. LASIX [Concomitant]
  4. GLYBURIDE [Concomitant]
  5. LISINOPRIL [Concomitant]
  6. ATROVENT [Concomitant]

REACTIONS (3)
  - ASTHMA [None]
  - ELECTROCARDIOGRAM POOR R-WAVE PROGRESSION [None]
  - SUPRAVENTRICULAR EXTRASYSTOLES [None]
